FAERS Safety Report 6698806-1 (Version None)
Quarter: 2010Q2

REPORT INFORMATION
  Report Type: 
  Country: None (occurrence: None)
  Receive Date: 20100427
  Receipt Date: 20100419
  Transmission Date: 20101027
  Serious: No
  Sender: FDA-Public Use
  Company Number: PHEH2010US02513

PATIENT
  Sex: Male

DRUGS (21)
  1. TASIGNA [Suspect]
     Indication: CHRONIC MYELOID LEUKAEMIA
     Dosage: 400 MG, BID
     Route: 048
     Dates: start: 20091001
  2. ASPIRIN [Concomitant]
     Dosage: 325 MG, QD
     Route: 048
  3. ASPIRIN [Concomitant]
     Dosage: 81 MG, UNK
  4. LISINOPRIL [Concomitant]
     Dosage: 10 MG, QD
     Route: 048
  5. LISINOPRIL [Concomitant]
     Dosage: 5 MG IN THE MORNING
  6. CARVEDILOL [Concomitant]
     Dosage: 3.125 MG, QD
     Route: 048
  7. CARVEDILOL [Concomitant]
     Dosage: 6.25 MG, BID
     Route: 048
  8. ZOLOFT [Concomitant]
     Dosage: 50 MG TAB, AT BEDTIME
  9. FINASTERIDE [Concomitant]
  10. PERCOCET [Concomitant]
     Indication: PAIN
     Dosage: UNK,PRN
  11. AMBIEN [Concomitant]
     Dosage: 10 MG, PRN
  12. CLONAZEPAM [Concomitant]
  13. DOXAZOSIN [Concomitant]
     Dosage: 4 MG, 24 HR
  14. ACETAMINOPHEN AND HYDROCODONE BITARTRATE [Concomitant]
  15. HYDROXYZINE [Concomitant]
  16. K-DUR [Concomitant]
  17. MECLIZINE [Concomitant]
     Dosage: UNK, PRN
  18. OXYCODONE W/PARACETAMOL [Concomitant]
     Dosage: UNK, PRN
  19. UROXATRAL [Concomitant]
     Dosage: 10 MG, 24 HR
  20. VICODIN [Concomitant]
     Dosage: UNK, PRN
  21. XYZAL [Concomitant]
     Dosage: 5 MG, QD
     Route: 048

REACTIONS (4)
  - JOINT SWELLING [None]
  - NORMOCHROMIC NORMOCYTIC ANAEMIA [None]
  - OEDEMA PERIPHERAL [None]
  - RASH ERYTHEMATOUS [None]
